FAERS Safety Report 15004348 (Version 3)
Quarter: 2018Q3

REPORT INFORMATION
  Report Type: Spontaneous
  Country: US (occurrence: US)
  Receive Date: 20180613
  Receipt Date: 20180921
  Transmission Date: 20181010
  Serious: Yes (Hospitalization, Other)
  Sender: FDA-Public Use
  Company Number: US-PFIZER INC-2018239511

PATIENT
  Age: 74 Year
  Sex: Male
  Weight: 107.5 kg

DRUGS (34)
  1. ALLOPURINOL. [Concomitant]
     Active Substance: ALLOPURINOL
     Dosage: 300 MG, 1X/DAY [FOR 90 DAYS]
     Route: 048
     Dates: start: 20180813
  2. OXCARBAZEPINE. [Concomitant]
     Active Substance: OXCARBAZEPINE
     Dosage: 300 MG, 2X/DAY
     Route: 048
  3. TOPROL XL [Concomitant]
     Active Substance: METOPROLOL SUCCINATE
     Dosage: 25 MG, DAILY (SR. 24H)
     Route: 048
     Dates: start: 20180604
  4. ZYLOPRIM [Concomitant]
     Active Substance: ALLOPURINOL
     Dosage: 1 DF, DAILY
     Route: 048
     Dates: start: 20160622
  5. GABAPENTIN. [Suspect]
     Active Substance: GABAPENTIN
     Indication: NEURALGIA
     Dosage: 300 MG, 3X/DAY
     Route: 048
     Dates: start: 201503, end: 20180424
  6. MELOXICAM. [Concomitant]
     Active Substance: MELOXICAM
     Dosage: 15 MG, 2X/DAY
     Route: 048
     Dates: start: 20180109
  7. GABAPENTIN. [Suspect]
     Active Substance: GABAPENTIN
     Indication: PAIN IN EXTREMITY
     Dosage: 300 MG, 3X/DAY
     Route: 048
     Dates: start: 201804, end: 20180601
  8. GABAPENTIN. [Suspect]
     Active Substance: GABAPENTIN
     Dosage: 600 MG, 3X/DAY (TID)
     Route: 048
  9. ENALAPRIL [Concomitant]
     Active Substance: ENALAPRIL
     Dosage: 20 MG, 2X/DAY [FOR 90 DAYS]
     Route: 048
     Dates: start: 20180813
  10. MOMETASONE [Concomitant]
     Active Substance: MOMETASONE
     Dosage: UNK,  2X/DAY (APPLY A THIN LAYER TO THE AFFECTED AREA(S) BY TOPICAL ROUTE 2 TIMES PER DAY FOR 30 DA)
     Route: 061
     Dates: start: 20170601
  11. ELIQUIS [Concomitant]
     Active Substance: APIXABAN
     Dosage: 5 MG, 2X/DAY
     Route: 048
     Dates: start: 20180604
  12. METOPROLOL SUCCINATE. [Concomitant]
     Active Substance: METOPROLOL SUCCINATE
     Dosage: 25 MG, 1X/DAY [FOR 90 DAYS]
     Route: 048
     Dates: start: 20180626
  13. OXCARBAZEPINE. [Concomitant]
     Active Substance: OXCARBAZEPINE
     Dosage: 300 MG, 1X/DAY
     Route: 048
  14. OXCARBAZEPINE. [Concomitant]
     Active Substance: OXCARBAZEPINE
     Dosage: 300 MG, 3X/DAY
     Route: 048
  15. GABAPENTIN. [Suspect]
     Active Substance: GABAPENTIN
     Indication: BACK PAIN
     Dosage: 600 MG 0.5 TABLET (TID), 3X/DAY
     Route: 048
     Dates: start: 2018, end: 20180601
  16. ATENOLOL. [Concomitant]
     Active Substance: ATENOLOL
     Dosage: 50 MG, 1X/DAY
     Route: 048
     Dates: start: 20180109
  17. SIMVASTATIN. [Concomitant]
     Active Substance: SIMVASTATIN
     Dosage: 40 MG, 1X/DAY [EVENING]
     Route: 048
     Dates: start: 20180109
  18. ELIQUIS [Concomitant]
     Active Substance: APIXABAN
     Dosage: 5 MG, 2X/DAY
     Route: 048
     Dates: start: 20180602
  19. ELIQUIS [Concomitant]
     Active Substance: APIXABAN
     Dosage: 5 MG, 2X/DAY [FOR 30 DAYS]
     Route: 048
     Dates: start: 20180626
  20. TOPROL XL [Concomitant]
     Active Substance: METOPROLOL SUCCINATE
     Dosage: 25 MG, 1X/DAY (24 HR.)
     Route: 048
     Dates: start: 20171201
  21. FUROSEMIDE. [Concomitant]
     Active Substance: FUROSEMIDE
     Dosage: 20 MG, UNK [TAKE 1?2 TABLETS BY ORAL ROUTE QD? BID]
     Route: 048
     Dates: start: 20180424
  22. POTASSIUM CHLORIDE. [Concomitant]
     Active Substance: POTASSIUM CHLORIDE
     Dosage: 10 MEQ, UNK [TAKE 1 CAPSULE BY ORAL ROUTE QD?BID WITH FUROSEMIDE]
     Route: 048
     Dates: start: 20180824
  23. ALLOPURINOL. [Concomitant]
     Active Substance: ALLOPURINOL
     Dosage: 300 MG, 1X/DAY
     Route: 048
     Dates: start: 20180109
  24. CARTIA XT [Concomitant]
     Active Substance: DILTIAZEM HYDROCHLORIDE
     Dosage: 240 MG, 1X/DAY
     Route: 048
     Dates: start: 20180109
  25. DILTIAZEM HCL [Concomitant]
     Active Substance: DILTIAZEM HYDROCHLORIDE
     Dosage: 240 MG, 1X/DAY
     Route: 048
     Dates: start: 20170601
  26. MELOXICAM. [Concomitant]
     Active Substance: MELOXICAM
     Dosage: 15 MG, 1X/DAY (FOR 30 DAYS)
     Route: 048
     Dates: start: 20171201
  27. SIMVASTATIN. [Concomitant]
     Active Substance: SIMVASTATIN
     Dosage: 40 MG, 1X/DAY [ONE TABLET BY MOUTH ONCE DAILY IN THE EVENING FOR 90 DAYS]
     Route: 048
     Dates: start: 20180813
  28. ELIQUIS [Concomitant]
     Active Substance: APIXABAN
     Dosage: 5 MG, 2X/DAY
     Route: 048
     Dates: start: 20180109
  29. HYDROCHLOROTHIAZIDE. [Concomitant]
     Active Substance: HYDROCHLOROTHIAZIDE
  30. VENTOLIN HFA [Concomitant]
     Active Substance: ALBUTEROL SULFATE
     Dosage: 720 UG, DAILY [INHALE 2 PUFFS (180 MCG) BY INHALATION ROUTE EVERY 6 HOURS FOR 30 DAYS]
     Route: 055
     Dates: start: 20171201
  31. VASOTEC [Concomitant]
     Active Substance: ENALAPRIL MALEATE
     Dosage: 1 DF, 2X/DAY
     Route: 048
     Dates: start: 20160622
  32. ASPIRIN (E.C.) [Concomitant]
     Active Substance: ASPIRIN
     Dosage: 81 MG, 1X/DAY
     Route: 048
     Dates: start: 20180109
  33. ENALAPRIL [Concomitant]
     Active Substance: ENALAPRIL
     Dosage: 20 MG, DAILY
     Route: 048
     Dates: start: 20180109
  34. ZOCOR [Concomitant]
     Active Substance: SIMVASTATIN
     Dosage: 1 DF, DAILY
     Route: 048
     Dates: start: 20160622

REACTIONS (19)
  - Ear swelling [Unknown]
  - Arrhythmia [Unknown]
  - Eye oedema [Unknown]
  - Dyspnoea [Unknown]
  - Condition aggravated [Unknown]
  - Product use in unapproved indication [Unknown]
  - Weight increased [Unknown]
  - Atrial fibrillation [Recovering/Resolving]
  - Acute kidney injury [Unknown]
  - Drug hypersensitivity [Unknown]
  - Deafness [Unknown]
  - Somnolence [Unknown]
  - Generalised oedema [Unknown]
  - Oedema [Recovering/Resolving]
  - Obesity [Unknown]
  - Gravitational oedema [Unknown]
  - Fluid retention [Unknown]
  - Hypotension [Recovering/Resolving]
  - Oedema peripheral [Unknown]

NARRATIVE: CASE EVENT DATE: 201503
